FAERS Safety Report 4575931-2 (Version None)
Quarter: 2005Q1

REPORT INFORMATION
  Report Type: 
  Country: None (occurrence: None)
  Receive Date: 20050204
  Receipt Date: 20050127
  Transmission Date: 20050727
  Serious: Yes (Death, Other)
  Sender: FDA-Public Use
  Company Number: 2005-01-1788

PATIENT
  Age: 72 Year
  Sex: Male

DRUGS (1)
  1. TEMODAL [Suspect]
     Indication: GLIOBLASTOMA MULTIFORME
     Dosage: 200MG/M2 QD ORAL
     Route: 048
     Dates: start: 20041004, end: 20041115

REACTIONS (2)
  - PLATELET COUNT DECREASED [None]
  - RESPIRATORY FAILURE [None]
